FAERS Safety Report 16982563 (Version 1)
Quarter: 2019Q4

REPORT INFORMATION
  Report Type: Spontaneous
  Country: US (occurrence: US)
  Receive Date: 20191101
  Receipt Date: 20191101
  Transmission Date: 20200122
  Serious: No
  Sender: FDA-Public Use
  Company Number: US-BAYER-2019-196818

PATIENT
  Sex: Female
  Weight: 88.44 kg

DRUGS (4)
  1. DILTIAZEM. [Concomitant]
     Active Substance: DILTIAZEM
  2. AMBRISENTAN [Concomitant]
     Active Substance: AMBRISENTAN
  3. MIRALAX [Suspect]
     Active Substance: POLYETHYLENE GLYCOL 3350
  4. TYVASO [Concomitant]
     Active Substance: TREPROSTINIL
     Dosage: UNK UNK, QID
     Dates: start: 20130430

REACTIONS (4)
  - Abdominal pain upper [None]
  - Constipation [None]
  - Drug ineffective [None]
  - Abdominal distension [None]
